FAERS Safety Report 5259818-8 (Version None)
Quarter: 2007Q1

REPORT INFORMATION
  Report Type: 
  Country: None (occurrence: None)
  Receive Date: 20070309
  Receipt Date: 20070228
  Transmission Date: 20070707
  Serious: Yes (Hospitalization)
  Sender: FDA-Public Use
  Company Number: 2006UW15780

PATIENT
  Age: 12028 Day
  Sex: Female
  Weight: 156.4 kg

DRUGS (8)
  1. SEROQUEL [Suspect]
     Indication: INSOMNIA
     Route: 048
     Dates: start: 20030519, end: 20040421
  2. RISPERDAL [Concomitant]
     Dates: start: 19980101
  3. WELLBUTRIN XL [Concomitant]
     Indication: SCHIZOPHRENIA
     Dates: start: 19980101
  4. WELLBUTRIN XL [Concomitant]
     Indication: DEPRESSION
     Dates: start: 19980101
  5. STRATTERA [Concomitant]
     Indication: ATTENTION DEFICIT/HYPERACTIVITY DISORDER
     Dates: start: 19980101
  6. BENICAR [Concomitant]
     Indication: HYPERTENSION
     Dates: start: 20000101
  7. SYNTHROID [Concomitant]
     Indication: HYPOTHYROIDISM
     Dates: start: 19970101
  8. CRESTOR [Concomitant]
     Indication: BLOOD CHOLESTEROL INCREASED
     Dates: start: 20000101

REACTIONS (6)
  - ANXIETY [None]
  - BLINDNESS [None]
  - DEPRESSION [None]
  - DIABETES MELLITUS [None]
  - URINARY TRACT INFECTION [None]
  - WEIGHT INCREASED [None]
